FAERS Safety Report 7396359-6 (Version None)
Quarter: 2011Q2

REPORT INFORMATION
  Report Type: 
  Country: None (occurrence: None)
  Receive Date: 20110406
  Receipt Date: 20110331
  Transmission Date: 20111010
  Serious: Yes (Death)
  Sender: FDA-Public Use
  Company Number: FR-SANOFI-AVENTIS-2011SA020051

PATIENT
  Age: 67 Year
  Sex: Female

DRUGS (2)
  1. CALCIPARINE [Suspect]
  2. LOVENOX [Suspect]

REACTIONS (2)
  - DEEP VEIN THROMBOSIS [None]
  - PULMONARY EMBOLISM [None]
